FAERS Safety Report 8658704 (Version 2)
Quarter: 2012Q4

REPORT INFORMATION
  Report Type: 
  Country: CA (occurrence: CA)
  Receive Date: 20120710
  Receipt Date: 20120911
  Transmission Date: 20130627
  Serious: Yes (Life-Threatening, Other)
  Sender: FDA-Public Use
  Company Number: CA-ELI_LILLY_AND_COMPANY-CA201206009658

PATIENT
  Age: 41 Year
  Sex: Female
  Weight: 60.32 kg

DRUGS (5)
  1. HUMALOG LISPRO [Suspect]
     Indication: TYPE 1 DIABETES MELLITUS
     Dosage: UNK, unknown
     Route: 058
  2. LANTUS [Concomitant]
  3. LIPITOR [Concomitant]
  4. ELAVIL [Concomitant]
  5. PANTOLOC                           /01263204/ [Concomitant]

REACTIONS (1)
  - Hypoglycaemic coma [Recovering/Resolving]
